FAERS Safety Report 5271095-0 (Version None)
Quarter: 2007Q1

REPORT INFORMATION
  Report Type: 
  Country: None (occurrence: None)
  Receive Date: 20070321
  Receipt Date: 20070227
  Transmission Date: 20070707
  Serious: Yes (Other)
  Sender: FDA-Public Use
  Company Number: SE-GLAXOSMITHKLINE-B0462399A

PATIENT
  Sex: Male

DRUGS (1)
  1. PAROXETINE HCL [Suspect]
     Indication: POST-TRAUMATIC STRESS DISORDER
     Dates: start: 20010101

REACTIONS (4)
  - ABNORMAL BEHAVIOUR [None]
  - FALL [None]
  - SUICIDE ATTEMPT [None]
  - SYNCOPE [None]
